FAERS Safety Report 9096469 (Version 1)
Quarter: 2013Q1

REPORT INFORMATION
  Report Type: Spontaneous
  Country: US (occurrence: US)
  Receive Date: 20130211
  Receipt Date: 20130211
  Transmission Date: 20140127
  Serious: Yes (Other)
  Sender: FDA-Public Use
  Company Number: US-JNJFOC-20130114612

PATIENT
  Age: 19 Year
  Sex: Male

DRUGS (2)
  1. INVEGA SUSTENNA [Suspect]
     Indication: BIPOLAR DISORDER
     Route: 030
  2. INVEGA [Suspect]
     Indication: BIPOLAR DISORDER
     Route: 048

REACTIONS (4)
  - Peripheral embolism [Not Recovered/Not Resolved]
  - Anaphylactic reaction [Recovered/Resolved]
  - Akathisia [Not Recovered/Not Resolved]
  - Muscle rigidity [Unknown]
